FAERS Safety Report 21557169 (Version 1)
Quarter: 2022Q4

REPORT INFORMATION
  Report Type: Spontaneous
  Country: FR (occurrence: FR)
  Receive Date: 20221105
  Receipt Date: 20221105
  Transmission Date: 20230112
  Serious: Yes (Hospitalization)
  Sender: FDA-Public Use
  Company Number: None

PATIENT
  Age: 2 Year
  Sex: Male

DRUGS (6)
  1. LAMIVUDINE [Suspect]
     Active Substance: LAMIVUDINE
     Indication: Accidental exposure to product by child
     Dosage: UNK, ONCE/SINGLE (1 TOTAL)
     Route: 048
     Dates: start: 20210219, end: 20210219
  2. ABACAVIR [Suspect]
     Active Substance: ABACAVIR
     Indication: Accidental exposure to product by child
     Dosage: UNK, ONCE/SINGLE (1 TOTAL)
     Route: 048
     Dates: start: 20210219, end: 20210219
  3. IRBESARTAN [Suspect]
     Active Substance: IRBESARTAN
     Indication: Accidental exposure to product by child
     Dosage: UNK, ONCE/SINGLE (1 TOTAL)
     Route: 048
     Dates: start: 20210219, end: 20210219
  4. HYDROCHLOROTHIAZIDE [Suspect]
     Active Substance: HYDROCHLOROTHIAZIDE
     Indication: Accidental exposure to product by child
     Dosage: UNK, ONCE/SINGLE (1 TOTAL)
     Route: 048
     Dates: start: 20210219, end: 20210219
  5. VIRAMUNE [Suspect]
     Active Substance: NEVIRAPINE
     Indication: Accidental exposure to product by child
     Dosage: UNK, ONCE/SINGLE (1 TOTAL)
     Route: 048
     Dates: start: 20210219, end: 20210219
  6. LERCANIDIPINE HYDROCHLORIDE [Suspect]
     Active Substance: LERCANIDIPINE HYDROCHLORIDE
     Indication: Accidental exposure to product by child
     Dosage: UNK, ONCE/SINGLE (1 TOTAL)
     Route: 048
     Dates: start: 20210219, end: 20210219

REACTIONS (3)
  - Tachycardia [Not Recovered/Not Resolved]
  - Accidental exposure to product by child [Recovered/Resolved]
  - Accidental overdose [Recovered/Resolved]

NARRATIVE: CASE EVENT DATE: 20210219
